FAERS Safety Report 7528699-1 (Version None)
Quarter: 2011Q2

REPORT INFORMATION
  Report Type: 
  Country: None (occurrence: None)
  Receive Date: 20110607
  Receipt Date: 20110603
  Transmission Date: 20111010
  Serious: Yes (Hospitalization)
  Sender: FDA-Public Use
  Company Number: IT-PFIZER INC-2011112623

PATIENT
  Age: 73 Year
  Sex: Female

DRUGS (12)
  1. ALDACTONE [Concomitant]
  2. ASCRIPTIN [Concomitant]
  3. UNASYN [Suspect]
     Indication: BRONCHITIS
     Dosage: 2 UNIT DOSE DAILY
     Route: 042
     Dates: start: 20091215, end: 20100105
  4. SPIRIVA [Concomitant]
  5. DISIPAL [Concomitant]
     Dosage: 2 UNIT DOSE
     Route: 048
  6. ISOPTIN [Concomitant]
     Dosage: 2 UNIT DOSE
     Route: 048
  7. FORADIL [Concomitant]
  8. PROMAZINE HYDROCHLORIDE [Concomitant]
     Dosage: 8 GTT, UNK
     Route: 048
  9. LASIX [Concomitant]
  10. BUDESONIDE [Concomitant]
  11. NATECAL [Concomitant]
  12. HALDOL [Concomitant]

REACTIONS (1)
  - MEGACOLON [None]
